FAERS Safety Report 12797528 (Version 1)
Quarter: 2016Q3

REPORT INFORMATION
  Report Type: Report from Study
  Country: US (occurrence: US)
  Receive Date: 20160930
  Receipt Date: 20160930
  Transmission Date: 20161109
  Serious: Yes (Other)
  Sender: FDA-Public Use
  Company Number: US-BAXTER-2016BAX049053

PATIENT
  Age: 13 Year
  Sex: Male
  Weight: 48.3 kg

DRUGS (25)
  1. DEXAMETHASONE. [Suspect]
     Active Substance: DEXAMETHASONE
     Indication: ANAPLASTIC LARGE CELL LYMPHOMA T- AND NULL-CELL TYPES
     Dosage: PROPHASE (CYCLE=5 DAYS), ON DAYS 1-2 AND 3-5
     Route: 048
  2. METHOTREXATE SODIUM. [Suspect]
     Active Substance: METHOTREXATE SODIUM
     Dosage: COURSE A: CYCLES 1, 3 AND 5 (CYCLE=21 DAYS) IV OVER 3 HOURS ON DAY-1
     Route: 042
     Dates: start: 20160328
  3. IFOSFAMIDE FOR INJECTION [Suspect]
     Active Substance: IFOSFAMIDE
     Indication: ANAPLASTIC LARGE CELL LYMPHOMA T- AND NULL-CELL TYPES
     Dosage: COURSE A: CYCLES 1, 3 AND 5 (CYCLE=21 DAYS) IV OVER 60 MINUTES ON DAYS 1-5
     Route: 042
     Dates: start: 20160328
  4. CYTARABINE. [Suspect]
     Active Substance: CYTARABINE
     Dosage: COURSE A: CYCLES 1, 3 AND 5 (CYCLE=21 DAYS), IV OVER 1-30 MINUTES EVERY 12 HOURS ON DAYS 4 AND 5 (TO
     Route: 042
     Dates: start: 20160328
  5. DEXAMETHASONE. [Suspect]
     Active Substance: DEXAMETHASONE
     Dosage: LAST ADMINISTERED
     Route: 048
     Dates: start: 20160718
  6. METHOTREXATE SODIUM. [Suspect]
     Active Substance: METHOTREXATE SODIUM
     Route: 042
     Dates: start: 20160718
  7. HYDROCORTISONE. [Suspect]
     Active Substance: HYDROCORTISONE
     Indication: ANAPLASTIC LARGE CELL LYMPHOMA T- AND NULL-CELL TYPES
     Dosage: PROPHASE (CYCLE=5 DAYS), 7.5-12 MG, IT ON DAY-1 (AGE BASED DOSING)
     Route: 037
  8. METHOTREXATE SODIUM. [Suspect]
     Active Substance: METHOTREXATE SODIUM
     Dosage: COURSE B: CYCLES 2, 4 AND 6 (CYCLE=21 DAYS) IV OVER 3 HORS ON DAY-1
     Route: 042
  9. CYTARABINE. [Suspect]
     Active Substance: CYTARABINE
     Indication: ANAPLASTIC LARGE CELL LYMPHOMA T- AND NULL-CELL TYPES
     Dosage: PROPHASE (CYCLE=5 DAYS), 15-24 MG, IT ON DAY-1 (AGE BASED DOSING)
     Route: 037
  10. VP-16 [Suspect]
     Active Substance: ETOPOSIDE
     Route: 042
     Dates: start: 20160701
  11. CRIZOTINIB [Suspect]
     Active Substance: CRIZOTINIB
     Indication: ANAPLASTIC LARGE CELL LYMPHOMA T- AND NULL-CELL TYPES
     Dosage: COURSE A: CYCLES 1, 3 AND 5 (CYCLE=21 DAYS), ON DAYS 1-21
     Route: 048
     Dates: start: 20160328
  12. CRIZOTINIB [Suspect]
     Active Substance: CRIZOTINIB
     Dosage: COURSE B: (CYCLE=21 DAYS), ON DAYS 1-21
     Route: 048
     Dates: start: 20160328
  13. CYCLOPHOSPHAMIDE FOR INJECTION, USP [Suspect]
     Active Substance: CYCLOPHOSPHAMIDE
     Dosage: LAST ADMINISTERED
     Route: 042
     Dates: start: 20160718
  14. DOXORUBICIN HYDROCHLORIDE. [Suspect]
     Active Substance: DOXORUBICIN HYDROCHLORIDE
     Indication: ANAPLASTIC LARGE CELL LYMPHOMA T- AND NULL-CELL TYPES
     Dosage: COURSE:B, CYCLES 2, 4 AND 6 (CYCLE=21 DAYS), IV OVER 1-15 MINUTES ON DAY 4 AND 5
     Route: 042
  15. CYTARABINE. [Suspect]
     Active Substance: CYTARABINE
     Route: 042
     Dates: start: 20160701
  16. VP-16 [Suspect]
     Active Substance: ETOPOSIDE
     Indication: ANAPLASTIC LARGE CELL LYMPHOMA T- AND NULL-CELL TYPES
     Dosage: COURSE A: CYCLES 1, 3 AND 5 (CYCLE=21 DAYS), IV OVER 2 HOURS ON DAYS 4 AND 5
     Route: 042
     Dates: start: 20160328
  17. IFOSFAMIDE FOR INJECTION [Suspect]
     Active Substance: IFOSFAMIDE
     Dosage: LAST ADMINISTERED
     Route: 042
     Dates: start: 20160701
  18. DEXAMETHASONE. [Suspect]
     Active Substance: DEXAMETHASONE
     Dosage: PROPHASE (CYCLE=5 DAYS), ON DAYS 3-5
     Route: 048
  19. DEXAMETHASONE. [Suspect]
     Active Substance: DEXAMETHASONE
     Dosage: COURSE: A CYCLES 1,3 AND 5 (CYCLE=21 DAYS), ON DAYS 1-5
     Route: 048
     Dates: start: 20160328
  20. CRIZOTINIB [Suspect]
     Active Substance: CRIZOTINIB
     Route: 048
     Dates: start: 20160718
  21. DOXORUBICIN HYDROCHLORIDE. [Suspect]
     Active Substance: DOXORUBICIN HYDROCHLORIDE
     Dosage: LAST ADMINISTERED
     Route: 042
     Dates: start: 20160604
  22. METHOTREXATE SODIUM. [Suspect]
     Active Substance: METHOTREXATE SODIUM
     Indication: ANAPLASTIC LARGE CELL LYMPHOMA T- AND NULL-CELL TYPES
     Dosage: PROPHASE (CYCLE=5 DAYS), 7.5-12.5 MG IT ON DAY-1 AGE BASED DOSING
     Route: 037
  23. CYCLOPHOSPHAMIDE FOR INJECTION, USP [Suspect]
     Active Substance: CYCLOPHOSPHAMIDE
     Indication: ANAPLASTIC LARGE CELL LYMPHOMA T- AND NULL-CELL TYPES
     Dosage: PROPHASE (CYCLE=5 DAYS), IV OVER 15-30 MINUTES ON DAYS 1 AND 2
     Route: 042
  24. CYCLOPHOSPHAMIDE FOR INJECTION, USP [Suspect]
     Active Substance: CYCLOPHOSPHAMIDE
     Dosage: COURSE: B CYCLES 2, 4 AND 6 (CYCLE=21 DAYS), IV OVER 15-30 MINUTES ON DAYS 1-5
     Route: 042
  25. DEXAMETHASONE. [Suspect]
     Active Substance: DEXAMETHASONE
     Dosage: COURSE B: CYCLES 2, 4 AND 6 (CYCLE=21 DAYS) ON DAYS 1-5
     Route: 048

REACTIONS (1)
  - Vascular access complication [Unknown]

NARRATIVE: CASE EVENT DATE: 20160718
